FAERS Safety Report 10009914 (Version 2)
Quarter: 2014Q1

REPORT INFORMATION
  Report Type: Spontaneous
  Country: US (occurrence: US)
  Receive Date: 20140312
  Receipt Date: 20140312
  Transmission Date: 20141002
  Serious: No
  Sender: FDA-Public Use
  Company Number: US-INCYTE CORPORATION-2013IN000266

PATIENT
  Age: 66 Year
  Sex: Female
  Weight: 45.81 kg

DRUGS (9)
  1. JAKAFI [Suspect]
     Indication: MYELOFIBROSIS
     Dosage: 10 MG, QD (5 DAYS A WEEK)
     Route: 048
     Dates: start: 20130119
  2. JAKAFI [Suspect]
     Dosage: 10 MG, QD (M-W-F)
     Dates: start: 20130208
  3. ALLOPURINOL [Concomitant]
  4. AMITRIPTYLINE [Concomitant]
  5. SERTRALINE [Concomitant]
  6. BUTALBITAL [Concomitant]
  7. SYNTHROID [Concomitant]
  8. FEOSOL [Concomitant]
  9. ROCALTROL [Concomitant]

REACTIONS (6)
  - Hypertension [None]
  - Headache [Recovered/Resolved]
  - Nasopharyngitis [Unknown]
  - Oropharyngeal pain [Unknown]
  - Conjunctival haemorrhage [Unknown]
  - Therapeutic response unexpected [Unknown]
